FAERS Safety Report 23473740 (Version 1)
Quarter: 2024Q1

REPORT INFORMATION
  Report Type: Spontaneous
  Country: CN (occurrence: CN)
  Receive Date: 20240203
  Receipt Date: 20240203
  Transmission Date: 20240409
  Serious: Yes (Hospitalization)
  Sender: FDA-Public Use
  Company Number: CN-NOVITIUMPHARMA-2024CNNVP00103

PATIENT
  Age: 74 Year
  Sex: Female

DRUGS (13)
  1. DIGOXIN [Suspect]
     Active Substance: DIGOXIN
     Indication: Lung adenocarcinoma
  2. DIGOXIN [Suspect]
     Active Substance: DIGOXIN
     Indication: Cardiac failure
  3. ERLOTINIB [Concomitant]
     Active Substance: ERLOTINIB
     Indication: Lung adenocarcinoma
  4. ERLOTINIB [Concomitant]
     Active Substance: ERLOTINIB
     Indication: Cardiac failure
  5. GEFITINIB [Concomitant]
     Active Substance: GEFITINIB
     Indication: Lung adenocarcinoma
  6. GEFITINIB [Concomitant]
     Active Substance: GEFITINIB
     Indication: Cardiac failure
  7. SAVOLITINIB [Concomitant]
     Active Substance: SAVOLITINIB
     Indication: Lung adenocarcinoma
  8. SAVOLITINIB [Concomitant]
     Active Substance: SAVOLITINIB
     Indication: Cardiac failure
  9. MILRINONE [Concomitant]
     Active Substance: MILRINONE
     Indication: Lung adenocarcinoma
  10. MILRINONE [Concomitant]
     Active Substance: MILRINONE
     Indication: Cardiac failure
  11. FUROSEMIDE [Concomitant]
     Active Substance: FUROSEMIDE
     Indication: Lung adenocarcinoma
  12. FUROSEMIDE [Concomitant]
     Active Substance: FUROSEMIDE
     Indication: Cardiac failure
  13. OSIMERTINIB [Concomitant]
     Active Substance: OSIMERTINIB
     Indication: Lung adenocarcinoma

REACTIONS (1)
  - Drug ineffective [Unknown]
